FAERS Safety Report 6305069-5 (Version None)
Quarter: 2009Q3

REPORT INFORMATION
  Report Type: 
  Country: None (occurrence: None)
  Receive Date: 20090811
  Receipt Date: 20090730
  Transmission Date: 20100115
  Serious: Yes (Hospitalization, Other)
  Sender: FDA-Public Use
  Company Number: US-PFIZER INC-2009251141

PATIENT
  Sex: Male

DRUGS (2)
  1. CHANTIX [Suspect]
     Indication: SMOKING CESSATION THERAPY
     Dosage: FREQUENCY: 2X/DAY, EVERYDAY;
     Route: 048
     Dates: start: 20090612
  2. MULTI-VITAMINS [Concomitant]
     Route: 048

REACTIONS (4)
  - DRY THROAT [None]
  - HEADACHE [None]
  - HERNIA REPAIR [None]
  - ORAL CANDIDIASIS [None]
